FAERS Safety Report 9492138 (Version 3)
Quarter: 2015Q1

REPORT INFORMATION
  Report Type: Spontaneous
  Country: NL (occurrence: NL)
  Receive Date: 20130830
  Receipt Date: 20150327
  Transmission Date: 20150721
  Serious: Yes (Death, Hospitalization, Other)
  Sender: FDA-Public Use
  Company Number: NL-ACTELION-A-CH2013-87767

PATIENT
  Age: 65 Year
  Sex: Female
  Weight: 89 kg

DRUGS (7)
  1. SIMVASTATINE [Concomitant]
     Active Substance: SIMVASTATIN
  2. METFORMIN [Concomitant]
     Active Substance: METFORMIN HYDROCHLORIDE
  3. CARVEDILOL. [Concomitant]
     Active Substance: CARVEDILOL
  4. TRACLEER [Suspect]
     Active Substance: BOSENTAN\BOSENTAN MONOHYDRATE
     Indication: SKIN ULCER
     Dosage: 62.5 MG, BID
     Route: 048
     Dates: start: 20091222, end: 20130803
  5. LANTUS [Concomitant]
     Active Substance: INSULIN GLARGINE
  6. PANTOPRAZOLE [Concomitant]
     Active Substance: PANTOPRAZOLE SODIUM
  7. INSULIN [Concomitant]
     Active Substance: INSULIN NOS

REACTIONS (5)
  - Cancer surgery [Unknown]
  - Cardiomyopathy [Unknown]
  - Percutaneous coronary intervention [Unknown]
  - Lung cancer metastatic [Fatal]
  - Metastases to bone [Fatal]

NARRATIVE: CASE EVENT DATE: 2010
